FAERS Safety Report 9806939 (Version 2)
Quarter: 2014Q2

REPORT INFORMATION
  Report Type: Spontaneous
  Country: BR (occurrence: BR)
  Receive Date: 20140109
  Receipt Date: 20140627
  Transmission Date: 20141212
  Serious: Yes (Hospitalization)
  Sender: FDA-Public Use
  Company Number: BR-MERCK-1401BRA001425

PATIENT
  Age: 53 Year
  Sex: Female
  Weight: 63 kg

DRUGS (9)
  1. PEGINTERFERON ALFA-2B [Suspect]
     Indication: HEPATITIS C
     Dosage: 0.7 DF, QW
     Route: 058
     Dates: start: 20131007, end: 201310
  2. PEGINTERFERON ALFA-2B [Suspect]
     Dosage: 0.4 DF, QW
     Route: 058
     Dates: start: 201310
  3. RIBAVIRIN (NON-MERCK) [Concomitant]
     Indication: HEPATITIS C
     Dosage: 500 MG, QAM
     Dates: start: 20131007
  4. RIBAVIRIN (NON-MERCK) [Concomitant]
     Dosage: 250 MG, QPM
     Dates: start: 20131007
  5. HYDROCHLOROTHIAZIDE [Concomitant]
     Indication: DIURETIC THERAPY
     Dosage: 25 MG, QAM
     Dates: start: 2009
  6. ATENOLOL [Concomitant]
     Indication: HYPERTENSION
     Dosage: 50 MG, QAM
     Dates: start: 201210
  7. LOSARTAN POTASSIUM (GENERIC DRUG) [Concomitant]
     Indication: HYPERTENSION
     Dosage: 50 MG, QAM
     Dates: start: 2009
  8. OMEPRAZOLE [Concomitant]
     Indication: PRODUCT USED FOR UNKNOWN INDICATION
     Dosage: 40 MG, QAM
     Dates: start: 2004
  9. OMEPRAZOLE [Concomitant]
     Dosage: 20 MG, QPM
     Dates: start: 2004

REACTIONS (10)
  - Haemoglobin decreased [Recovered/Resolved]
  - Transfusion [Unknown]
  - Transfusion [Unknown]
  - Weight decreased [Recovered/Resolved]
  - Decreased appetite [Recovered/Resolved]
  - Pyrexia [Recovered/Resolved]
  - Anaemia [Recovered/Resolved]
  - Fatigue [Recovered/Resolved]
  - Stomatitis [Recovered/Resolved]
  - Nasal ulcer [Recovered/Resolved]
